FAERS Safety Report 15150447 (Version 1)
Quarter: 2018Q3

REPORT INFORMATION
  Report Type: Spontaneous
  Country: US (occurrence: US)
  Receive Date: 20180716
  Receipt Date: 20180716
  Transmission Date: 20181010
  Serious: No
  Sender: FDA-Public Use
  Company Number: US-BAYER-2018-129513

PATIENT
  Age: 74 Year
  Sex: Female
  Weight: 52 kg

DRUGS (2)
  1. PRILOSEC [Concomitant]
     Active Substance: OMEPRAZOLE MAGNESIUM
  2. MIRALAX [Suspect]
     Active Substance: POLYETHYLENE GLYCOL 3350
     Dosage: 17 G, IN A PROTEIN DRINK
     Route: 048
     Dates: start: 20180706

REACTIONS (2)
  - Inappropriate schedule of drug administration [None]
  - Product prescribing issue [Unknown]

NARRATIVE: CASE EVENT DATE: 20180706
